FAERS Safety Report 12001478 (Version 2)
Quarter: 2016Q1

REPORT INFORMATION
  Report Type: Spontaneous
  Country: US (occurrence: US)
  Receive Date: 20160204
  Receipt Date: 20160225
  Transmission Date: 20160526
  Serious: Yes (Hospitalization)
  Sender: FDA-Public Use
  Company Number: US-BAUSCH-BL-2016-001836

PATIENT
  Age: 78 Year
  Sex: Male
  Weight: 79.45 kg

DRUGS (2)
  1. PROVENGE [Suspect]
     Active Substance: SIPULEUCEL-T
     Indication: PROSTATE CANCER
     Route: 042
     Dates: start: 20151218, end: 20151218
  2. PROVENGE [Suspect]
     Active Substance: SIPULEUCEL-T
     Route: 042
     Dates: start: 20160108, end: 20160108

REACTIONS (5)
  - Blood pressure decreased [Unknown]
  - Heart rate decreased [Unknown]
  - Seizure [Unknown]
  - Unresponsive to stimuli [Unknown]
  - Malaise [Unknown]

NARRATIVE: CASE EVENT DATE: 20160119
